FAERS Safety Report 26116170 (Version 1)
Quarter: 2025Q4

REPORT INFORMATION
  Report Type: Spontaneous
  Country: EU (occurrence: EU)
  Receive Date: 20251203
  Receipt Date: 20251203
  Transmission Date: 20260118
  Serious: Yes (Hospitalization)
  Sender: RHYTHM PHARMACEUTICALS
  Company Number: EU-RHYTHM PHARMACEUTICALS, INC.-2025RHM000852

PATIENT

DRUGS (1)
  1. IMCIVREE [Suspect]
     Active Substance: SETMELANOTIDE
     Indication: Laurence-Moon-Bardet-Biedl syndrome
     Dosage: 2 MILLIGRAM
     Dates: start: 20250507

REACTIONS (5)
  - Cough [Unknown]
  - Asthma [Unknown]
  - Pyrexia [Unknown]
  - Epistaxis [Unknown]
  - Headache [Unknown]
